FAERS Safety Report 9274096 (Version 1)
Quarter: 2013Q2

REPORT INFORMATION
  Report Type: Spontaneous
  Country: DE (occurrence: DE)
  Receive Date: 20130506
  Receipt Date: 20130506
  Transmission Date: 20140414
  Serious: Yes (Life-Threatening, Hospitalization)
  Sender: FDA-Public Use
  Company Number: DE-PFIZER INC-2013139713

PATIENT
  Age: 41 Year
  Sex: Male
  Weight: 70 kg

DRUGS (4)
  1. SERTRALINE HCL [Suspect]
     Dosage: 25 ANZ,1 IN 1 ONCE
     Route: 048
  2. QUETIAPIN PFIZER [Suspect]
     Dosage: 50 MG, SINGLE
     Route: 048
  3. QUENTIAX [Suspect]
     Dosage: 100 MG,60 IN 1 ONCE
     Route: 048
  4. QUENTIAX [Suspect]
     Dosage: 25 MG,30 IN 1 ONCE
     Route: 048

REACTIONS (7)
  - Suicide attempt [Unknown]
  - Sopor [Unknown]
  - Hypotension [Unknown]
  - Coma [Unknown]
  - Tachycardia [Unknown]
  - Cardiovascular insufficiency [Unknown]
  - Incorrect dose administered [None]
